FAERS Safety Report 4722035-1 (Version None)
Quarter: 2005Q3

REPORT INFORMATION
  Report Type: 
  Country: None (occurrence: None)
  Receive Date: 20050722
  Receipt Date: 20050712
  Transmission Date: 20060218
  Serious: Yes (Hospitalization)
  Sender: FDA-Public Use
  Company Number: PL-ROCHE-410401

PATIENT
  Age: 40 Year
  Sex: Female

DRUGS (3)
  1. MYCOPHENOLATE MOFETIL [Suspect]
     Route: 048
     Dates: start: 20040918
  2. TACROLIMUS [Suspect]
     Route: 065
     Dates: start: 20040918
  3. PREDNISONE [Concomitant]

REACTIONS (2)
  - LYMPHOCELE [None]
  - URINARY TRACT INFECTION [None]
